FAERS Safety Report 14260007 (Version 1)
Quarter: 2017Q4

REPORT INFORMATION
  Report Type: Report from Study
  Country: US (occurrence: US)
  Receive Date: 20171207
  Receipt Date: 20171207
  Transmission Date: 20180321
  Serious: Yes (Other)
  Sender: FDA-Public Use
  Company Number: US-TEVA-2017-US-826830

PATIENT
  Sex: Male

DRUGS (3)
  1. CLARAVIS [Suspect]
     Active Substance: ISOTRETINOIN
     Dates: start: 20170823, end: 2017
  2. AMNESTEEM [Suspect]
     Active Substance: ISOTRETINOIN
     Dates: start: 20170718, end: 2017
  3. MYORISAN [Suspect]
     Active Substance: ISOTRETINOIN
     Dates: start: 20170615, end: 2017

REACTIONS (2)
  - Mood altered [Recovering/Resolving]
  - Depression [Recovering/Resolving]

NARRATIVE: CASE EVENT DATE: 2017
